FAERS Safety Report 8588617-4 (Version None)
Quarter: 2012Q3

REPORT INFORMATION
  Report Type: 
  Country: None (occurrence: None)
  Receive Date: 20120813
  Receipt Date: 20120806
  Transmission Date: 20120928
  Serious: No
  Sender: FDA-Public Use
  Company Number: PHHY2012JP060425

PATIENT
  Age: 82 Year
  Sex: Male

DRUGS (9)
  1. EXELON [Suspect]
     Indication: DEMENTIA ALZHEIMER'S TYPE
     Dosage: 4.6 MG, QD
     Route: 062
     Dates: start: 20120511, end: 20120607
  2. CADUET [Concomitant]
     Dosage: UNK UKN, UNK
     Route: 048
  3. EXELON [Suspect]
     Dosage: 9.5 MG, QD
     Route: 062
     Dates: start: 20120608, end: 20120702
  4. JANUVIA [Concomitant]
     Dosage: UNK UKN, UNK
     Route: 048
  5. LASIX [Concomitant]
     Dosage: 40 MG, UNK
     Route: 048
  6. METFORMIN HCL [Concomitant]
     Dosage: 1000 MG, UNK
     Route: 048
  7. MICAMLO [Concomitant]
     Dosage: UNK UKN, UNK
     Route: 048
  8. EXELON [Suspect]
     Dosage: 13.3 MG, QD
     Route: 062
     Dates: start: 20120703, end: 20120703
  9. GLIMEPIRIDE [Concomitant]
     Dosage: UNK UKN, UNK
     Route: 048

REACTIONS (2)
  - RASH [None]
  - SKIN EROSION [None]
